FAERS Safety Report 9613166 (Version 1)
Quarter: 2013Q4

REPORT INFORMATION
  Report Type: Report from Study
  Country: BR (occurrence: BR)
  Receive Date: 20131010
  Receipt Date: 20131010
  Transmission Date: 20140711
  Serious: Yes (Other)
  Sender: FDA-Public Use
  Company Number: BR-ROCHE-1283574

PATIENT
  Sex: 0

DRUGS (2)
  1. RANIBIZUMAB [Suspect]
     Indication: AGE-RELATED MACULAR DEGENERATION
     Dosage: EVERY 4-6 WEEK
     Route: 050
  2. BEVACIZUMAB [Suspect]
     Indication: AGE-RELATED MACULAR DEGENERATION
     Dosage: EVERY 4-6 WEEK
     Route: 050

REACTIONS (2)
  - Retinal haemorrhage [Unknown]
  - No therapeutic response [Unknown]
